FAERS Safety Report 6039113-X (Version None)
Quarter: 2009Q1

REPORT INFORMATION
  Report Type: 
  Country: None (occurrence: None)
  Receive Date: 20090115
  Receipt Date: 20090105
  Transmission Date: 20090719
  Serious: Yes (Other)
  Sender: FDA-Public Use
  Company Number: US-PFIZER INC-2009152035

PATIENT
  Sex: Female
  Weight: 63.502 kg

DRUGS (6)
  1. XALATAN [Suspect]
     Indication: GLAUCOMA
     Dosage: UNK
  2. LUMIGAN [Suspect]
     Dates: start: 20070201
  3. COMBIGAN [Suspect]
     Dates: start: 20080701
  4. LOTREL [Concomitant]
  5. SYNTHROID [Concomitant]
  6. PILOCARPINE [Concomitant]

REACTIONS (6)
  - CARDIAC DISORDER [None]
  - CONJUNCTIVITIS [None]
  - COUGH [None]
  - LUNG INFECTION [None]
  - NASAL CONGESTION [None]
  - POSTNASAL DRIP [None]
